FAERS Safety Report 18666126 (Version 1)
Quarter: 2020Q4

REPORT INFORMATION
  Report Type: Spontaneous
  Country: GB (occurrence: GB)
  Receive Date: 20201226
  Receipt Date: 20201226
  Transmission Date: 20210114
  Serious: Yes (Disabling, Other)
  Sender: FDA-Public Use
  Company Number: GB-TEVA-2020-GB-1861901

PATIENT
  Age: 81 Year
  Sex: Male
  Weight: 69 kg

DRUGS (9)
  1. CIPROFLOXACIN HYDROCHLORIDE. [Suspect]
     Active Substance: CIPROFLOXACIN HYDROCHLORIDE
     Indication: GINGIVITIS
     Dosage: 500 MG
     Route: 048
     Dates: start: 20201117, end: 20201123
  2. ATORVASTATIN [Concomitant]
     Active Substance: ATORVASTATIN
  3. CALCI-D [Concomitant]
     Active Substance: CALCIUM CARBONATE\CHOLECALCIFEROL
  4. PERINDOPRIL TERT-BUTYLAMINE [Concomitant]
     Active Substance: PERINDOPRIL ERBUMINE
  5. AMLODIPINE [Concomitant]
     Active Substance: AMLODIPINE BESYLATE
  6. PREDNISOLONE. [Concomitant]
     Active Substance: PREDNISOLONE
  7. ACETYLSALICYLIC ACID [Concomitant]
     Active Substance: ASPIRIN
  8. AZATHIOPRINE. [Concomitant]
     Active Substance: AZATHIOPRINE
  9. DYMISTA [Concomitant]
     Active Substance: AZELASTINE HYDROCHLORIDE\FLUTICASONE PROPIONATE

REACTIONS (3)
  - Tendonitis [Unknown]
  - Swelling [Unknown]
  - Tendon pain [Unknown]

NARRATIVE: CASE EVENT DATE: 20201125
